FAERS Safety Report 21892728 (Version 4)
Quarter: 2023Q1

REPORT INFORMATION
  Report Type: Spontaneous
  Country: JP (occurrence: JP)
  Receive Date: 20230120
  Receipt Date: 20230308
  Transmission Date: 20230418
  Serious: Yes (Other)
  Sender: FDA-Public Use
  Company Number: JP-AMERICAN REGENT INC-2023000137

PATIENT
  Age: 48 Year
  Sex: Female

DRUGS (3)
  1. FERINJECT [Suspect]
     Active Substance: FERRIC CARBOXYMALTOSE
     Indication: Anaemia
     Dosage: 500 MILLIGRAM DILUTED IN 100 ML OF 0.9% NACL (500 MG, 1 IN 1 WK)
     Dates: start: 20221212, end: 20221212
  2. FERINJECT [Suspect]
     Active Substance: FERRIC CARBOXYMALTOSE
     Dosage: 500 MILLIGRAM DILUTED IN 100 ML OF 0.9% NACL (500 MG, 1 IN 1 WK)
     Dates: start: 20221219, end: 20221219
  3. FERINJECT [Suspect]
     Active Substance: FERRIC CARBOXYMALTOSE
     Dosage: 500 MILLIGRAM DILUTED IN 100 ML OF 0.9% NACL (500 MG, 1 IN 1 WK)
     Dates: start: 20221226, end: 20221226

REACTIONS (3)
  - Hypoaesthesia [Not Recovered/Not Resolved]
  - Infusion site discolouration [Not Recovered/Not Resolved]
  - Infusion site extravasation [Not Recovered/Not Resolved]

NARRATIVE: CASE EVENT DATE: 20221226
